FAERS Safety Report 9683926 (Version 1)
Quarter: 2013Q4

REPORT INFORMATION
  Report Type: Spontaneous
  Country: US (occurrence: US)
  Receive Date: 20131112
  Receipt Date: 20131112
  Transmission Date: 20140711
  Serious: No
  Sender: FDA-Public Use
  Company Number: US-MALLINCKRODT-T201304804

PATIENT
  Age: 77 Year
  Sex: Female
  Weight: 72.56 kg

DRUGS (4)
  1. FENTANYL TRANSDERMAL SYSTEM [Suspect]
     Indication: INTERVERTEBRAL DISC DEGENERATION
     Dosage: 50 UG/HR, Q 72 HRS
     Route: 062
     Dates: start: 20131106
  2. TYLENOL W/CODEINE NO. 4 [Concomitant]
     Indication: BREAKTHROUGH PAIN
     Dosage: 300/80 MG, Q 8 HRS PRN
     Route: 065
  3. LISINOPRIL [Concomitant]
     Indication: BLOOD PRESSURE
     Dosage: 20 MG, QD
     Route: 065
  4. LOVASTATIN [Concomitant]
     Indication: BLOOD CHOLESTEROL
     Dosage: 40 MG, QD
     Route: 065

REACTIONS (2)
  - Urinary incontinence [Recovered/Resolved]
  - Drug effect decreased [Not Recovered/Not Resolved]
